FAERS Safety Report 8807264 (Version 1)
Quarter: 2012Q4

REPORT INFORMATION
  Report Type: 
  Country: US (occurrence: US)
  Receive Date: 20120925
  Receipt Date: 20120925
  Transmission Date: 20130627
  Serious: No
  Sender: FDA-Public Use
  Company Number: US-ASTRAZENECA-2012SE73064

PATIENT
  Age: 83 Year
  Sex: Female
  Weight: 43.1 kg

DRUGS (8)
  1. SYMBICORT [Suspect]
     Indication: CHRONIC OBSTRUCTIVE PULMONARY DISEASE
     Dosage: 160/4.5 MCG 2 PUFFS BID
     Route: 055
  2. SYMBICORT [Suspect]
     Indication: CHRONIC OBSTRUCTIVE PULMONARY DISEASE
     Dosage: 1 PUFFS BID
     Route: 055
  3. VENTOLIN [Suspect]
     Route: 065
  4. OXYGEN [Concomitant]
  5. HYDROMET [Concomitant]
     Indication: COUGH
  6. DALMANE [Concomitant]
     Indication: SLEEP DISORDER
  7. REPAIR GOLD [Concomitant]
     Indication: VITAMIN SUPPLEMENTATION
  8. OMEGA Q [Concomitant]
     Indication: MEDICAL DIET

REACTIONS (4)
  - Eye disorder [Unknown]
  - Dysphonia [Unknown]
  - Intentional drug misuse [Unknown]
  - Drug effect decreased [Unknown]
